FAERS Safety Report 5789151-7 (Version None)
Quarter: 2008Q2

REPORT INFORMATION
  Report Type: 
  Country: None (occurrence: None)
  Receive Date: 20080626
  Receipt Date: 20080213
  Transmission Date: 20081010
  Serious: No
  Sender: FDA-Public Use
  Company Number: US-ASTRAZENECA-2007UW27507

PATIENT
  Age: 77 Year
  Sex: Female
  Weight: 45.4 kg

DRUGS (4)
  1. PULMICORT FLEXHALER [Suspect]
     Indication: ASTHMA
     Route: 055
     Dates: start: 20071101
  2. ALBUTEROL [Concomitant]
  3. ASPIRIN [Concomitant]
  4. VITAMINS [Concomitant]

REACTIONS (3)
  - ASTHENOPIA [None]
  - EYE PAIN [None]
  - VISION BLURRED [None]
